FAERS Safety Report 5390236-8 (Version None)
Quarter: 2007Q3

REPORT INFORMATION
  Report Type: 
  Country: None (occurrence: None)
  Receive Date: 20070718
  Receipt Date: 20070710
  Transmission Date: 20080115
  Serious: Yes (Other)
  Sender: FDA-Public Use
  Company Number: DE-ASTRAZENECA-2007PK01466

PATIENT
  Age: 513 Month
  Sex: Female

DRUGS (3)
  1. ARIMIDEX [Suspect]
     Indication: BREAST CANCER
     Route: 048
     Dates: start: 20050324
  2. ZOLEDRONIC ACID [Suspect]
     Indication: BREAST CANCER
     Route: 042
     Dates: start: 20050324
  3. ZOLADEX [Concomitant]
     Indication: BREAST CANCER
     Route: 058

REACTIONS (2)
  - DEAFNESS UNILATERAL [None]
  - TINNITUS [None]
